FAERS Safety Report 6394246-3 (Version None)
Quarter: 2009Q4

REPORT INFORMATION
  Report Type: 
  Country: None (occurrence: None)
  Receive Date: 20091006
  Receipt Date: 20090922
  Transmission Date: 20100525
  Serious: Yes (Other)
  Sender: FDA-Public Use
  Company Number: B0595713A

PATIENT
  Sex: 0

DRUGS (5)
  1. MELPHALAN HYDROCHLORIDE [Suspect]
     Indication: RENAL NEOPLASM
  2. ETOPOSIDE [Suspect]
     Indication: RENAL NEOPLASM
  3. CARBOPLATIN [Suspect]
     Indication: RENAL NEOPLASM
  4. CYCLOPHOSPHAMIDE [Suspect]
     Indication: RENAL NEOPLASM
  5. THIOTEPA [Suspect]

REACTIONS (2)
  - FEBRILE NEUTROPENIA [None]
  - VENOOCCLUSIVE LIVER DISEASE [None]
